FAERS Safety Report 7565591-0 (Version None)
Quarter: 2011Q2

REPORT INFORMATION
  Report Type: 
  Country: None (occurrence: None)
  Receive Date: 20110615
  Receipt Date: 20110608
  Transmission Date: 20111010
  Serious: Yes (Hospitalization)
  Sender: FDA-Public Use
  Company Number: 2011124371

PATIENT
  Age: 45 Year
  Sex: Male

DRUGS (13)
  1. METHADONE HYDROCHLORIDE [Concomitant]
  2. NEXIUM [Concomitant]
  3. SERESTA FORTE (OXAZEPAM) [Concomitant]
  4. ENOXAPARIN SODIUM [Suspect]
     Dosage: 40 MG, 1X/DAY, SUBCUTANEOUS
     Route: 058
     Dates: start: 20100101, end: 20100807
  5. EFFEXOR XR [Concomitant]
  6. FRAGMIN [Suspect]
     Dosage: 5000 IU, 1X/DAY, SUBCUTANEOUS
     Route: 058
     Dates: start: 20070101, end: 20100101
  7. GYNO-TARDYFERON (ASCORBIC ACID, FERROUS SULFATE, FOLIC ACID, PROTEASE) [Concomitant]
  8. ASPIRIN [Concomitant]
  9. OLFEN (DICLOFENAC SODIUM) [Concomitant]
  10. KALETRA [Concomitant]
  11. FOLIC ACID [Concomitant]
  12. NOVALGIN (METAMIZOLE SODIUM) [Concomitant]
  13. TRUVADA [Concomitant]

REACTIONS (5)
  - OSTEOPOROSIS [None]
  - FALL [None]
  - NUTRITIONAL CONDITION ABNORMAL [None]
  - OSTEOPOROTIC FRACTURE [None]
  - FEMUR FRACTURE [None]
